FAERS Safety Report 24761514 (Version 1)
Quarter: 2024Q4

REPORT INFORMATION
  Report Type: Report from Study
  Country: DE (occurrence: DE)
  Receive Date: 20241220
  Receipt Date: 20241220
  Transmission Date: 20250114
  Serious: Yes (Hospitalization, Other)
  Sender: MERCK
  Company Number: DE-009507513-2411DEU002999

PATIENT
  Age: 59 Year
  Sex: Female

DRUGS (8)
  1. SOTATERCEPT [Suspect]
     Active Substance: SOTATERCEPT
     Indication: Pulmonary hypertension
     Dosage: 0.7 MG/KG
     Dates: start: 20241104, end: 20241216
  2. OPSUMIT [Concomitant]
     Active Substance: MACITENTAN
     Dosage: 10 MILLIGRAM, QAM
  3. SILDENAFIL [Concomitant]
     Active Substance: SILDENAFIL
     Dosage: 20 MILLIGRAM, TID
  4. REMODULIN [Concomitant]
     Active Substance: TREPROSTINIL
     Dosage: UNK
  5. VERAPAMIL [Concomitant]
     Active Substance: VERAPAMIL HYDROCHLORIDE
     Dosage: 0.5 DOSAGE FORM, QAM
  6. SPIRONOLACTONE [Concomitant]
     Active Substance: SPIRONOLACTONE
     Dosage: 50 MILLIGRAM, QAM
  7. XARELTO [Concomitant]
     Active Substance: RIVAROXABAN
     Dosage: 20 MILLIGRAM, QPM
  8. PANTOPRAZOLE [Concomitant]
     Active Substance: PANTOPRAZOLE
     Dosage: 40 MILLIGRAM, QPM

REACTIONS (2)
  - Diarrhoea haemorrhagic [Unknown]
  - Haemoglobin increased [Unknown]

NARRATIVE: CASE EVENT DATE: 20241105
